FAERS Safety Report 9052860 (Version 1)
Quarter: 2013Q1

REPORT INFORMATION
  Report Type: Spontaneous
  Country: JP (occurrence: JP)
  Receive Date: 20130207
  Receipt Date: 20130207
  Transmission Date: 20140127
  Serious: Yes (Hospitalization, Other)
  Sender: FDA-Public Use
  Company Number: JP-JNJFOC-20120813910

PATIENT
  Age: 82 None
  Sex: Male
  Weight: 62 kg

DRUGS (24)
  1. XARELTO [Suspect]
     Indication: ATRIAL FIBRILLATION
     Dosage: CUMULATIVE DOSE TO FIRST REACTION = 150 MG
     Route: 048
     Dates: start: 20120808, end: 20120821
  2. XARELTO [Suspect]
     Indication: CEREBROVASCULAR ACCIDENT PROPHYLAXIS
     Dosage: CUMULATIVE DOSE TO FIRST REACTION = 150 MG
     Route: 048
     Dates: start: 20120808, end: 20120821
  3. UNFRACTIONATED HEPARIN [Interacting]
     Indication: HAEMODIALYSIS
     Route: 042
     Dates: start: 20120818, end: 20120818
  4. UNFRACTIONATED HEPARIN [Interacting]
     Indication: HAEMODIALYSIS
     Route: 042
     Dates: start: 20120820, end: 20120821
  5. CLARITHROMYCIN [Interacting]
     Indication: INFECTION PROPHYLAXIS
     Route: 048
     Dates: start: 20120810
  6. DIART [Concomitant]
     Route: 048
     Dates: start: 20120801
  7. TAKEPRON [Concomitant]
     Route: 048
     Dates: start: 20120816
  8. MAINTATE [Concomitant]
     Route: 048
     Dates: start: 20120807
  9. NESINA [Concomitant]
     Route: 048
     Dates: start: 20120817
  10. MAGMITT [Concomitant]
     Route: 048
     Dates: start: 20120807
  11. PIMOBENDAN [Concomitant]
     Route: 048
     Dates: start: 20120813
  12. FLUITRAN [Concomitant]
     Route: 048
     Dates: start: 20120816
  13. RYTHMODAN [Concomitant]
     Route: 048
     Dates: start: 20120817
  14. LANIRAPID [Concomitant]
     Route: 048
     Dates: start: 20120819
  15. GLOVENIN [Concomitant]
     Indication: INFECTION PROPHYLAXIS
     Route: 041
     Dates: start: 20120820, end: 20120822
  16. MEROPEN(MEROPENEM) [Concomitant]
     Indication: INFECTION PROPHYLAXIS
     Route: 041
     Dates: start: 20120819, end: 20120824
  17. CUBICIN [Concomitant]
     Indication: INFECTION PROPHYLAXIS
     Route: 041
     Dates: start: 20120806, end: 20120815
  18. MILRILA [Concomitant]
     Route: 041
     Dates: start: 20120812, end: 20120815
  19. DOPAMINE HYDROCHLORIDE [Concomitant]
     Route: 041
     Dates: start: 20120806, end: 20120812
  20. DOBUTAMINE HYDROCHLORIDE [Concomitant]
     Route: 041
     Dates: start: 20120806, end: 20120812
  21. HUMAN SERUM [Concomitant]
     Indication: DEHYDRATION
     Route: 042
     Dates: start: 20120816, end: 20120816
  22. HUMAN SERUM [Concomitant]
     Indication: DEHYDRATION
     Route: 042
     Dates: start: 20120813, end: 20120814
  23. HUMAN SERUM [Concomitant]
     Indication: OEDEMA
     Route: 042
     Dates: start: 20120816, end: 20120816
  24. HUMAN SERUM [Concomitant]
     Indication: OEDEMA
     Route: 042
     Dates: start: 20120813, end: 20120814

REACTIONS (4)
  - Haemorrhage subcutaneous [Recovered/Resolved]
  - Drug interaction [Recovered/Resolved]
  - Bacteraemia [Recovered/Resolved]
  - Urinary tract infection [Recovered/Resolved]
